FAERS Safety Report 9397914 (Version 2)
Quarter: 2013Q3

REPORT INFORMATION
  Report Type: Spontaneous
  Country: BR (occurrence: None)
  Receive Date: 20130709
  Receipt Date: 20130726
  Transmission Date: 20140515
  Serious: Yes (Death, Hospitalization, Other)
  Sender: FDA-Public Use
  Company Number: AUR-APL-2013-05656

PATIENT
  Age: 39 Year
  Sex: Male

DRUGS (10)
  1. CEFTRIAXONE [Suspect]
     Indication: EVIDENCE BASED TREATMENT
  2. OXACILLIN [Suspect]
     Indication: PRODUCT USED FOR UNKNOWN INDICATION
  3. MEROPENEM (MEROPENEM) [Suspect]
     Indication: PRODUCT USED FOR UNKNOWN INDICATION
  4. URSACOL (URSODEOXYCHOLIC ACID) [Concomitant]
  5. CALCIUM CARBONATE (CALCIUM CARBONATE) [Concomitant]
  6. SIMVASTATIN (SIMVASTATIN) [Concomitant]
  7. SPIRONOLACTONE (SPIRONOLACTONE) [Concomitant]
  8. FOLIC ACID (FOLIC ACID) [Concomitant]
  9. AZATHIOPRINE (AZATHIOPRINE) [Concomitant]
  10. PREDNISONE (PREDNISONE) [Concomitant]

REACTIONS (8)
  - Respiratory distress [None]
  - Blister [None]
  - Vibrio test positive [None]
  - Skin plaque [None]
  - Erythema [None]
  - Dermatitis bullous [None]
  - Cellulitis [None]
  - Septic shock [None]
